FAERS Safety Report 8884898 (Version 5)
Quarter: 2013Q2

REPORT INFORMATION
  Report Type: Spontaneous
  Country: US (occurrence: US)
  Receive Date: 20121105
  Receipt Date: 20130423
  Transmission Date: 20140414
  Serious: No
  Sender: FDA-Public Use
  Company Number: US-009507513-1210USA007353

PATIENT
  Age: 60 Year
  Sex: Female
  Weight: 92.52 kg

DRUGS (6)
  1. PEGINTRON [Suspect]
     Indication: HEPATITIS C
     Dosage: 150 MICROGRAM, QW
     Route: 058
     Dates: start: 20121005
  2. RIBASPHERE [Suspect]
  3. TELAPREVIR [Suspect]
  4. AMLODIPINE [Concomitant]
  5. LEVEMIR [Concomitant]
  6. NOVOLOG [Concomitant]

REACTIONS (4)
  - Vomiting [Unknown]
  - Asthenia [Recovered/Resolved]
  - Influenza like illness [Recovered/Resolved]
  - Drug dose omission [Unknown]
